FAERS Safety Report 19477602 (Version 2)
Quarter: 2021Q4

REPORT INFORMATION
  Report Type: Spontaneous
  Country: IT (occurrence: IT)
  Receive Date: 20210630
  Receipt Date: 20211117
  Transmission Date: 20220303
  Serious: Yes (Death, Hospitalization, Other)
  Sender: FDA-Public Use
  Company Number: IT-MYLANLABS-2021M1038435

PATIENT
  Age: 67 Year
  Sex: Female

DRUGS (4)
  1. FONDAPARINUX [Suspect]
     Active Substance: FONDAPARINUX
     Indication: Product used for unknown indication
     Dosage: 5 MILLIGRAM, QD
  2. PIPERACILLIN SODIUM\TAZOBACTAM SODIUM [Suspect]
     Active Substance: PIPERACILLIN SODIUM\TAZOBACTAM SODIUM
     Indication: Product used for unknown indication
     Dosage: 4.5 GRAM, TID
  3. CISPLATIN [Suspect]
     Active Substance: CISPLATIN
     Indication: Chemotherapy
     Dosage: UNK
     Route: 065
  4. VINORELBINE [Suspect]
     Active Substance: VINORELBINE TARTRATE
     Indication: Chemotherapy
     Dosage: UNK
     Route: 065

REACTIONS (6)
  - COVID-19 [Fatal]
  - Renal ischaemia [Unknown]
  - Abdominal pain [Unknown]
  - Nausea [Unknown]
  - Pyrexia [Unknown]
  - Dyspnoea [Unknown]
